FAERS Safety Report 5122291-4 (Version None)
Quarter: 2006Q4

REPORT INFORMATION
  Report Type: 
  Country: None (occurrence: None)
  Receive Date: 20061003
  Receipt Date: 20060919
  Transmission Date: 20070319
  Serious: Yes (Death)
  Sender: FDA-Public Use
  Company Number: 2006S1008931

PATIENT
  Age: 54 Year
  Sex: Female

DRUGS (4)
  1. CLOZAPINE [Suspect]
     Indication: SCHIZOPHRENIA
     Dosage: 50 MG;HS;PO
     Route: 048
     Dates: start: 20060219, end: 20060101
  2. CLOZAPINE [Suspect]
     Indication: SCHIZOPHRENIA
     Dosage: 500 MG;HS;PO
     Route: 048
     Dates: start: 20060219, end: 20060101
  3. OLANZAPINE [Concomitant]
  4. PRAMIPEXOLE DIHYDROCHLORIDE [Concomitant]

REACTIONS (3)
  - DYSPHAGIA [None]
  - ORAL INTAKE REDUCED [None]
  - PARKINSON'S DISEASE [None]
